FAERS Safety Report 25341863 (Version 1)
Quarter: 2025Q2

REPORT INFORMATION
  Report Type: Spontaneous
  Country: JP (occurrence: JP)
  Receive Date: 20250521
  Receipt Date: 20250521
  Transmission Date: 20250717
  Serious: Yes (Hospitalization)
  Sender: EISAI
  Company Number: JP-Eisai-202501739_ART-DLB_P_1

PATIENT
  Age: 70 Year
  Sex: Male

DRUGS (3)
  1. DONEPEZIL [Suspect]
     Active Substance: DONEPEZIL
     Indication: Dementia with Lewy bodies
     Route: 048
  2. DONEPEZIL [Suspect]
     Active Substance: DONEPEZIL
     Route: 048
  3. DONEPEZIL [Suspect]
     Active Substance: DONEPEZIL
     Route: 048

REACTIONS (9)
  - Diverticulum intestinal haemorrhagic [Unknown]
  - Blood pressure fluctuation [Unknown]
  - Decreased appetite [Unknown]
  - Illusion [Unknown]
  - Hallucination, visual [Unknown]
  - Poriomania [Unknown]
  - Aggression [Unknown]
  - Refusal of treatment by patient [Unknown]
  - Urinary incontinence [Unknown]
